FAERS Safety Report 17470583 (Version 19)
Quarter: 2022Q1

REPORT INFORMATION
  Report Type: Report from Study
  Country: US (occurrence: US)
  Receive Date: 20200228
  Receipt Date: 20220307
  Transmission Date: 20220424
  Serious: Yes (Hospitalization, Other)
  Sender: FDA-Public Use
  Company Number: US-SHIRE-US202007538

PATIENT
  Sex: Female
  Weight: 68 kg

DRUGS (38)
  1. HUMAN IMMUNOGLOBULIN G [Suspect]
     Active Substance: HUMAN IMMUNOGLOBULIN G
     Indication: Immunodeficiency common variable
     Dosage: 25 GRAM, Q3WEEKS
     Route: 042
     Dates: start: 20160115
  2. HUMAN IMMUNOGLOBULIN G [Suspect]
     Active Substance: HUMAN IMMUNOGLOBULIN G
     Dosage: 25 GRAM, Q4WEEKS
     Route: 042
     Dates: start: 20191015
  3. HUMAN IMMUNOGLOBULIN G [Suspect]
     Active Substance: HUMAN IMMUNOGLOBULIN G
     Dosage: 25 GRAM, Q3WEEKS
     Route: 042
     Dates: start: 20191015
  4. HUMAN IMMUNOGLOBULIN G [Suspect]
     Active Substance: HUMAN IMMUNOGLOBULIN G
     Dosage: 25 GRAM, Q3WEEKS
     Route: 042
     Dates: start: 20190604
  5. HUMAN IMMUNOGLOBULIN G [Suspect]
     Active Substance: HUMAN IMMUNOGLOBULIN G
     Dosage: 25 GRAM, Q3WEEKS
     Route: 042
     Dates: start: 20190614
  6. HYQVIA [Concomitant]
     Active Substance: HUMAN IMMUNOGLOBULIN G\HYALURONIDASE RECOMBINANT HUMAN
     Indication: Product used for unknown indication
  7. ACETAMINOPHEN [Concomitant]
     Active Substance: ACETAMINOPHEN
     Indication: Product used for unknown indication
  8. DIPHENHYDRAMINE [Concomitant]
     Active Substance: DIPHENHYDRAMINE
     Indication: Product used for unknown indication
  9. HEPARIN [Concomitant]
     Active Substance: HEPARIN SODIUM
     Indication: Product used for unknown indication
  10. SODIUM CHLORIDE [Concomitant]
     Active Substance: SODIUM CHLORIDE
     Indication: Product used for unknown indication
  11. EPINEPHRINE [Concomitant]
     Active Substance: EPINEPHRINE
     Indication: Product used for unknown indication
  12. ACETAMINOPHEN\HYDROCODONE [Concomitant]
     Active Substance: ACETAMINOPHEN\HYDROCODONE
     Indication: Product used for unknown indication
  13. QUETIAPINE [Concomitant]
     Active Substance: QUETIAPINE
     Indication: Product used for unknown indication
  14. FLONASE [Concomitant]
     Active Substance: FLUTICASONE PROPIONATE
     Indication: Product used for unknown indication
  15. PROZAC [Concomitant]
     Active Substance: FLUOXETINE HYDROCHLORIDE
     Indication: Product used for unknown indication
  16. CLONAZEPAM [Concomitant]
     Active Substance: CLONAZEPAM
     Indication: Product used for unknown indication
  17. LEVOXYL [Concomitant]
     Active Substance: LEVOTHYROXINE SODIUM
     Indication: Product used for unknown indication
  18. SODIUM CHLORIDE [Concomitant]
     Active Substance: SODIUM CHLORIDE
     Indication: Product used for unknown indication
  19. SODIUM CHLORIDE [Concomitant]
     Active Substance: SODIUM CHLORIDE
     Indication: Product used for unknown indication
  20. LIDOCAINE [Concomitant]
     Active Substance: LIDOCAINE
     Indication: Product used for unknown indication
  21. LIDOCAINE [Concomitant]
     Active Substance: LIDOCAINE
     Indication: Product used for unknown indication
  22. PILOCARPINE [Concomitant]
     Active Substance: PILOCARPINE
     Indication: Product used for unknown indication
  23. PILOCARPINE [Concomitant]
     Active Substance: PILOCARPINE
     Indication: Product used for unknown indication
  24. TRAMADOL [Concomitant]
     Active Substance: TRAMADOL
     Indication: Product used for unknown indication
  25. TRAMADOL [Concomitant]
     Active Substance: TRAMADOL
     Indication: Product used for unknown indication
  26. MAGNESIUM [Concomitant]
     Active Substance: MAGNESIUM
  27. PREDNISONE [Concomitant]
     Active Substance: PREDNISONE
  28. SEROQUEL [Concomitant]
     Active Substance: QUETIAPINE FUMARATE
  29. Lmx [Concomitant]
     Dosage: UNK
  30. ALENDRONATE SODIUM [Concomitant]
     Active Substance: ALENDRONATE SODIUM
     Dosage: UNK
  31. POTASSIUM [Concomitant]
     Active Substance: POTASSIUM
     Dosage: UNK
  32. CLOBETASOL [Concomitant]
     Active Substance: CLOBETASOL
     Dosage: UNK
  33. MACROBID [Concomitant]
     Active Substance: NITROFURANTOIN\NITROFURANTOIN MONOHYDRATE
     Route: 065
  34. NORCO [Concomitant]
     Active Substance: ACETAMINOPHEN\HYDROCODONE BITARTRATE
  35. LEVOTHYROXINE [Concomitant]
     Active Substance: LEVOTHYROXINE
  36. FOSFOMYCIN [Concomitant]
     Active Substance: FOSFOMYCIN
  37. TROMETHAMINE [Concomitant]
     Active Substance: TROMETHAMINE
  38. POTASSIUM GLUCONATE [Concomitant]
     Active Substance: POTASSIUM GLUCONATE

REACTIONS (16)
  - Spinal disorder [Unknown]
  - Polymyalgia rheumatica [Not Recovered/Not Resolved]
  - Neuropathy peripheral [Unknown]
  - Urinary tract infection [Unknown]
  - Cystitis [Unknown]
  - Infection [Unknown]
  - Ear pain [Unknown]
  - Infusion related reaction [Unknown]
  - Body temperature increased [Unknown]
  - High frequency ablation [Unknown]
  - Tooth infection [Unknown]
  - Intervertebral disc degeneration [Unknown]
  - Bladder disorder [Unknown]
  - Vomiting [Unknown]
  - Diarrhoea [Unknown]
  - Nausea [Unknown]
